FAERS Safety Report 6803702-2 (Version None)
Quarter: 2010Q2

REPORT INFORMATION
  Report Type: 
  Country: None (occurrence: None)
  Receive Date: 20100628
  Receipt Date: 20100617
  Transmission Date: 20101027
  Serious: Yes (Other)
  Sender: FDA-Public Use
  Company Number: SE-JNJFOC-20100605808

PATIENT
  Age: 17 Year
  Sex: Female
  Weight: 49.2 kg

DRUGS (4)
  1. REMICADE [Suspect]
     Indication: RHEUMATOID ARTHRITIS
     Route: 042
  2. REMICADE [Suspect]
     Indication: CROHN'S DISEASE
     Route: 042
  3. METOJECT [Concomitant]
  4. PREDNISOLONE [Concomitant]

REACTIONS (2)
  - PSORIASIS [None]
  - STREPTOCOCCAL INFECTION [None]
